FAERS Safety Report 18601744 (Version 2)
Quarter: 2020Q4

REPORT INFORMATION
  Report Type: Spontaneous
  Country: US (occurrence: US)
  Receive Date: 20201210
  Receipt Date: 20201223
  Transmission Date: 20210114
  Serious: Yes (Other)
  Sender: FDA-Public Use
  Company Number: US-ASTRAZENECA-2019SE10737

PATIENT
  Sex: Female

DRUGS (25)
  1. PRILOSEC [Suspect]
     Active Substance: OMEPRAZOLE MAGNESIUM
     Route: 048
  2. ATORVASTATIN [Concomitant]
     Active Substance: ATORVASTATIN
  3. ELITE [Concomitant]
     Active Substance: ALLANTOIN\LIDOCAINE\PETROLATUM
  4. EDARBI [Concomitant]
     Active Substance: AZILSARTAN KAMEDOXOMIL
  5. SYNTHROID [Concomitant]
     Active Substance: LEVOTHYROXINE SODIUM
  6. PRILOSEC OTC [Suspect]
     Active Substance: OMEPRAZOLE MAGNESIUM
     Route: 048
     Dates: start: 2000
  7. PREVACID [Suspect]
     Active Substance: LANSOPRAZOLE
     Route: 065
  8. CYMBALTA [Concomitant]
     Active Substance: DULOXETINE HYDROCHLORIDE
  9. NORVASC [Concomitant]
     Active Substance: AMLODIPINE BESYLATE
  10. VITAMIN D3 [Concomitant]
     Active Substance: CHOLECALCIFEROL
  11. PREVACID 24 HR [Suspect]
     Active Substance: LANSOPRAZOLE
     Route: 065
     Dates: start: 2000
  12. PROTONIX [Suspect]
     Active Substance: PANTOPRAZOLE SODIUM
     Dosage: GENERIC
     Route: 065
  13. CRESTOR [Concomitant]
     Active Substance: ROSUVASTATIN CALCIUM
  14. ASPIRIN. [Concomitant]
     Active Substance: ASPIRIN
  15. ACIPHEX [Suspect]
     Active Substance: RABEPRAZOLE SODIUM
     Route: 065
  16. ZOCOR [Concomitant]
     Active Substance: SIMVASTATIN
  17. KLOR-CON [Concomitant]
     Active Substance: POTASSIUM CHLORIDE
  18. BENICAR [Concomitant]
     Active Substance: OLMESARTAN MEDOXOMIL
  19. METOPROLOL. [Concomitant]
     Active Substance: METOPROLOL
  20. PRILOSEC [Suspect]
     Active Substance: OMEPRAZOLE MAGNESIUM
     Dosage: GENERIC
     Route: 048
  21. PROTONIX [Suspect]
     Active Substance: PANTOPRAZOLE SODIUM
     Route: 065
     Dates: start: 2000
  22. CLONIDINE. [Concomitant]
     Active Substance: CLONIDINE
  23. FOLIC ACID. [Concomitant]
     Active Substance: FOLIC ACID
  24. HYDRALAZINE [Concomitant]
     Active Substance: HYDRALAZINE HYDROCHLORIDE
  25. RANITIDINE. [Concomitant]
     Active Substance: RANITIDINE

REACTIONS (4)
  - Rebound acid hypersecretion [Unknown]
  - Chronic kidney disease [Unknown]
  - Renal injury [Unknown]
  - Renal failure [Unknown]
